FAERS Safety Report 10183140 (Version 9)
Quarter: 2015Q2

REPORT INFORMATION
  Report Type: Spontaneous
  Country: US (occurrence: US)
  Receive Date: 20140520
  Receipt Date: 20150615
  Transmission Date: 20150821
  Serious: Yes (Hospitalization, Other)
  Sender: FDA-Public Use
  Company Number: US-MERCK-1405USA004512

PATIENT
  Sex: Female
  Weight: 61.22 kg

DRUGS (7)
  1. FOSAMAX [Suspect]
     Active Substance: ALENDRONATE SODIUM
     Dosage: 70 MG, UNK
     Route: 048
     Dates: start: 20061208, end: 20080109
  2. ALENDRONATE SODIUM. [Suspect]
     Active Substance: ALENDRONATE SODIUM
     Dosage: 70 MG, UNK
     Route: 048
     Dates: start: 20080218, end: 20100818
  3. FOSAMAX [Suspect]
     Active Substance: ALENDRONATE SODIUM
     Indication: OSTEOPOROSIS
     Dosage: 10 MG, QD
     Route: 048
     Dates: start: 20011121, end: 200802
  4. ASCORBIC ACID. [Concomitant]
     Active Substance: ASCORBIC ACID
     Dosage: 500 MG, QD
     Dates: start: 1990
  5. CALCIUM (UNSPECIFIED) [Concomitant]
     Active Substance: CALCIUM
     Dosage: 400 MG, BID
     Dates: start: 1990
  6. ALENDRONATE SODIUM. [Suspect]
     Active Substance: ALENDRONATE SODIUM
     Indication: OSTEOPOROSIS
     Dosage: 70 MG, QW
     Route: 048
     Dates: start: 200802, end: 20110706
  7. OMEGA-3 MARINE TRIGLYCERIDES [Concomitant]
     Active Substance: FISH OIL
     Dosage: 1200 MG, QD
     Dates: start: 1995

REACTIONS (34)
  - Gastrooesophageal reflux disease [Unknown]
  - Urinary incontinence [Not Recovered/Not Resolved]
  - Essential hypertension [Unknown]
  - Fall [Unknown]
  - Deep vein thrombosis [Not Recovered/Not Resolved]
  - Adverse drug reaction [Unknown]
  - Vascular graft [Unknown]
  - Femur fracture [Recovered/Resolved]
  - Osteopenia [Unknown]
  - Device ineffective [Unknown]
  - Renal disorder [Unknown]
  - Vertigo [Unknown]
  - Drug ineffective [Unknown]
  - Medical device removal [Unknown]
  - Basal cell carcinoma [Unknown]
  - Bursitis [Unknown]
  - Pulse absent [Unknown]
  - Medical device implantation [Unknown]
  - Chronic obstructive pulmonary disease [Not Recovered/Not Resolved]
  - Medical device pain [Unknown]
  - Angina pectoris [Unknown]
  - Pain in extremity [Not Recovered/Not Resolved]
  - Intramedullary rod insertion [Unknown]
  - Coronary artery disease [Unknown]
  - Back disorder [Unknown]
  - Restless legs syndrome [Unknown]
  - Back pain [Not Recovered/Not Resolved]
  - Basal cell carcinoma [Unknown]
  - Haemoglobin decreased [Unknown]
  - Urinary tract infection [Unknown]
  - Pulmonary mass [Unknown]
  - Coronary artery bypass [Unknown]
  - Skin neoplasm excision [Unknown]
  - Calcium deficiency [Unknown]

NARRATIVE: CASE EVENT DATE: 20021205
